FAERS Safety Report 11995612 (Version 2)
Quarter: 2016Q1

REPORT INFORMATION
  Report Type: Spontaneous
  Country: SE (occurrence: SE)
  Receive Date: 20160203
  Receipt Date: 20160229
  Transmission Date: 20160526
  Serious: Yes (Hospitalization, Other)
  Sender: FDA-Public Use
  Company Number: SE-PFIZER INC-2014074605

PATIENT
  Age: 58 Year
  Sex: Male

DRUGS (6)
  1. ATARAX [Concomitant]
     Active Substance: HYDROXYZINE\HYDROXYZINE HYDROCHLORIDE
  2. METFORMIN [Concomitant]
     Active Substance: METFORMIN HYDROCHLORIDE
  3. DALACIN [Suspect]
     Active Substance: CLINDAMYCIN\CLINDAMYCIN PHOSPHATE
     Indication: FOLLICULITIS
     Dosage: UNK
     Route: 003
  4. TETRALYSAL [Suspect]
     Active Substance: LYMECYCLINE
     Indication: FOLLICULITIS
     Dosage: 600 MG, DAILY
     Route: 048
     Dates: start: 20130411, end: 20130505
  5. IBUPROFEN ACTAVIS [Concomitant]
     Active Substance: IBUPROFEN
  6. ALVEDON [Concomitant]
     Active Substance: ACETAMINOPHEN

REACTIONS (2)
  - Toxic epidermal necrolysis [Unknown]
  - Depressed level of consciousness [Not Recovered/Not Resolved]

NARRATIVE: CASE EVENT DATE: 20130501
